FAERS Safety Report 4353019-3 (Version None)
Quarter: 2004Q2

REPORT INFORMATION
  Report Type: 
  Country: None (occurrence: None)
  Receive Date: 20040429
  Receipt Date: 20040422
  Transmission Date: 20050107
  Serious: Yes (Hospitalization)
  Sender: FDA-Public Use
  Company Number: 200410156BFR

PATIENT
  Age: 54 Year
  Sex: Male
  Weight: 111 kg

DRUGS (6)
  1. GLUCOR (ACARBOSE) [Suspect]
     Indication: HYPERGLYCAEMIA
     Dosage: ORAL
     Route: 048
     Dates: start: 20000208, end: 20000216
  2. KETOPROFEN [Suspect]
     Dosage: 300 MG, TOTAL DAILY, ORAL
     Route: 048
     Dates: start: 20000208, end: 20000216
  3. GLYBURIDE [Suspect]
     Indication: HYPERGLYCAEMIA
     Dosage: 15 MG, TOTAL DAILY, ORAL
     Route: 048
     Dates: start: 20000204, end: 20000217
  4. GLUCOPHAGE [Suspect]
     Dosage: ORAL
     Route: 048
     Dates: start: 20000218, end: 20000224
  5. RIVOTRIL [Concomitant]
  6. ACETAMINOPHEN W/ PROPOXYPHENE HCL [Concomitant]

REACTIONS (6)
  - 5'NUCLEOTIDASE INCREASED [None]
  - CHOLANGITIS [None]
  - CHOLESTASIS [None]
  - CYTOLYTIC HEPATITIS [None]
  - HEPATIC STEATOSIS [None]
  - NEURALGIA [None]
